FAERS Safety Report 12899408 (Version 3)
Quarter: 2017Q1

REPORT INFORMATION
  Report Type: Report from Study
  Country: CN (occurrence: CN)
  Receive Date: 20161101
  Receipt Date: 20170113
  Transmission Date: 20170428
  Serious: Yes (Death, Hospitalization)
  Sender: FDA-Public Use
  Company Number: CN-ASTELLAS-2015JP018166

PATIENT
  Age: 77 Year
  Sex: Male
  Weight: 52 kg

DRUGS (11)
  1. ENZALUTAMIDE [Suspect]
     Active Substance: ENZALUTAMIDE
     Indication: HORMONE-REFRACTORY PROSTATE CANCER
     Route: 048
     Dates: start: 20160603, end: 20160726
  2. ENZALUTAMIDE [Suspect]
     Active Substance: ENZALUTAMIDE
     Route: 048
     Dates: start: 20161026, end: 20161102
  3. PLACEBO [Suspect]
     Active Substance: UNSPECIFIED INGREDIENT
     Indication: HORMONE-REFRACTORY PROSTATE CANCER
     Dosage: PLACEBO, 160 MG, ONCE DAILY
     Route: 048
     Dates: start: 20150430, end: 20151008
  4. TRIMETAZIDINE DIHYDROCHLORIDE [Concomitant]
     Active Substance: TRIMETAZIDINE DIHYDROCHLORIDE
     Indication: CORONARY ARTERY DISEASE
     Route: 048
     Dates: start: 201603, end: 201611
  5. ACARBOSE. [Concomitant]
     Active Substance: ACARBOSE
     Indication: DIABETES MELLITUS
     Route: 048
     Dates: start: 201305, end: 201611
  6. METFORMIN HYDROCHLORIDE. [Concomitant]
     Active Substance: METFORMIN HYDROCHLORIDE
     Indication: DIABETES MELLITUS
     Dosage: 0.5 G, THRICE DAILY
     Route: 048
     Dates: start: 201207, end: 201611
  7. LEUPRORELIN ACETATE [Concomitant]
     Active Substance: LEUPROLIDE ACETATE
     Indication: PROSTATE CANCER
     Route: 065
     Dates: start: 20130807, end: 201611
  8. LACTULOSE. [Concomitant]
     Active Substance: LACTULOSE
     Indication: CONSTIPATION
     Route: 048
     Dates: start: 201506, end: 20150831
  9. ENZALUTAMIDE [Suspect]
     Active Substance: ENZALUTAMIDE
     Route: 048
     Dates: start: 20160914, end: 20161022
  10. MAREN RUNCHANG [Concomitant]
     Indication: CONSTIPATION
     Dosage: 1 GRAIN, ONCE DAILY
     Route: 048
     Dates: start: 201506, end: 20150831
  11. PHENOLPHTHALEIN [Concomitant]
     Active Substance: PHENOLPHTHALEIN
     Indication: CONSTIPATION
     Route: 048
     Dates: start: 20150730, end: 20150831

REACTIONS (7)
  - Calculus urinary [Recovered/Resolved]
  - Hydronephrosis [Recovered/Resolved]
  - Renal failure [Recovered/Resolved]
  - Intestinal obstruction [Recovered/Resolved]
  - Ureteral stent insertion [Recovered/Resolved]
  - Multiple organ dysfunction syndrome [Fatal]
  - Constipation [Not Recovered/Not Resolved]

NARRATIVE: CASE EVENT DATE: 20150831
